FAERS Safety Report 17513350 (Version 1)
Quarter: 2020Q1

REPORT INFORMATION
  Report Type: Report from Study
  Country: CA (occurrence: CA)
  Receive Date: 20200306
  Receipt Date: 20200306
  Transmission Date: 20200409
  Serious: Yes (Hospitalization)
  Sender: FDA-Public Use
  Company Number: CA-JNJFOC-20191206968

PATIENT
  Age: 39 Year
  Sex: Female
  Weight: 134 kg

DRUGS (2)
  1. STELARA [Suspect]
     Active Substance: USTEKINUMAB
     Indication: CROHN^S DISEASE
     Route: 058
     Dates: start: 20180711
  2. STELARA [Suspect]
     Active Substance: USTEKINUMAB
     Route: 058
     Dates: start: 201808

REACTIONS (6)
  - Frequent bowel movements [Unknown]
  - Abortion spontaneous [Recovering/Resolving]
  - Exposure during pregnancy [Recovered/Resolved]
  - Dizziness [Unknown]
  - Arthralgia [Unknown]
  - Bronchitis [Unknown]

NARRATIVE: CASE EVENT DATE: 20191017
